FAERS Safety Report 7687323-8 (Version None)
Quarter: 2011Q3

REPORT INFORMATION
  Report Type: 
  Country: None (occurrence: None)
  Receive Date: 20110816
  Receipt Date: 20110808
  Transmission Date: 20111222
  Serious: Yes (Death, Life-Threatening)
  Sender: FDA-Public Use
  Company Number: JP-CELGENEUS-087-C5013-11073258

PATIENT
  Sex: Female

DRUGS (30)
  1. TRANSFUSION [Concomitant]
     Indication: PLATELET COUNT DECREASED
     Route: 041
     Dates: start: 20110723, end: 20110723
  2. HYDROCORTISONE [Concomitant]
     Indication: HAEMORRHOIDS
     Route: 061
     Dates: start: 20110710, end: 20110710
  3. PENTAZOCINE LACTATE [Concomitant]
     Dosage: 15 MILLIGRAM
     Route: 041
     Dates: start: 20110702, end: 20110717
  4. MICAFUNGIN [Concomitant]
     Indication: ANTIFUNGAL PROPHYLAXIS
     Dosage: 75 MILLIGRAM
     Route: 041
     Dates: start: 20110705, end: 20110728
  5. DOPAMINE HYDROCHLORIDE [Concomitant]
     Dosage: 600 MILLIGRAM
     Route: 041
     Dates: start: 20110728, end: 20110728
  6. ANALGESIC [Concomitant]
     Route: 065
  7. ZOPICLONE [Concomitant]
     Indication: SEDATION
     Dosage: 7.5 MILLIGRAM
     Route: 048
     Dates: start: 20110629, end: 20110719
  8. OLOPATADINE HYDROCHLORIDE [Concomitant]
     Dosage: 5 MILLIGRAM
     Route: 048
     Dates: start: 20110709, end: 20110722
  9. D-CHLORPHENIRAMINE MALEATE [Concomitant]
     Indication: PRURITUS
     Dosage: 2 MILLIGRAM
     Route: 048
     Dates: start: 20110709, end: 20110722
  10. NEUPOGEN [Concomitant]
     Dosage: 75 MILLIGRAM
     Route: 058
     Dates: start: 20110711, end: 20110712
  11. PREDNISONE [Concomitant]
     Indication: TUMOUR FLARE
     Dosage: 20 MILLIGRAM
     Route: 041
     Dates: start: 20110704, end: 20110728
  12. ANTIPYRETIC [Concomitant]
     Route: 065
  13. ZOLEDRONIC ACID [Concomitant]
     Indication: HYPERCALCAEMIA
     Route: 065
  14. SULFAMETHOXAZOLE AND TRIMETHOPRIM [Concomitant]
     Indication: INFECTION PROPHYLAXIS
     Dosage: 1 GRAM
     Route: 048
     Dates: start: 20110627, end: 20110717
  15. L-CARBOCISTEINE [Concomitant]
     Dosage: 500 MILLIGRAM
     Route: 048
     Dates: start: 20110627, end: 20110717
  16. FAMOTIDINE [Concomitant]
     Indication: PROPHYLAXIS
     Dosage: 20 MILLIGRAM
     Route: 048
     Dates: start: 20110627, end: 20110724
  17. LOXOPROFEN SODIUM HYDRATE [Concomitant]
     Indication: PAIN
     Dosage: 60 MILLIGRAM
     Route: 048
     Dates: start: 20110629, end: 20110719
  18. POVIDONE IODINE [Concomitant]
     Indication: SEDATION
     Route: 065
     Dates: start: 20110605, end: 20110728
  19. GENTAMICIN SULFATE [Concomitant]
     Route: 061
     Dates: start: 20110705, end: 20110728
  20. CEFOPERAZON SODIUM/SULBACTAM SODIUM [Concomitant]
     Indication: ANTI-INFECTIVE THERAPY
     Dosage: 1 GRAM
     Route: 041
     Dates: start: 20110715, end: 20110725
  21. HYDROXYZINE [Concomitant]
     Indication: ANXIOLYTIC THERAPY
     Dosage: 25 MILLIGRAM
     Route: 041
     Dates: start: 20110722, end: 20110723
  22. AMIKACIN SULFATE [Concomitant]
     Indication: ANTI-INFECTIVE THERAPY
     Dosage: 400 MILLIGRAM
     Route: 041
     Dates: start: 20110724, end: 20110728
  23. FRADIOMYCIN [Concomitant]
     Indication: HAEMORRHOIDS
     Route: 061
  24. ITRACONAZOLE [Concomitant]
     Indication: INFECTION PROPHYLAXIS
     Dosage: 100 MILLIGRAM
     Route: 048
     Dates: start: 20110627, end: 20110724
  25. DEXTROMETHORPHAN HYDROBROMIDE HYDRATE [Concomitant]
     Indication: COUGH
     Dosage: 15 MILLIGRAM
     Route: 048
     Dates: start: 20110629, end: 20110719
  26. HIGH-CALORIE INFUSION [Concomitant]
     Dosage: 903 MILLILITER
     Route: 041
     Dates: start: 20110724, end: 20110728
  27. MEROPENEM [Concomitant]
     Indication: ANTI-INFECTIVE THERAPY
     Dosage: 1 GRAM
     Route: 041
     Dates: start: 20110726, end: 20110728
  28. LENALIDOMIDE [Suspect]
     Indication: T-CELL LYMPHOMA
     Dosage: 35 MILLIGRAM
     Route: 048
     Dates: start: 20110627, end: 20110720
  29. TRIAMCINOLONE ACETONIDE [Concomitant]
     Indication: STOMATITIS
     Route: 061
     Dates: start: 20110605, end: 20110727
  30. MIDAZOLAM HCL [Concomitant]
     Indication: SEDATION
     Dosage: 2 MILLILITER
     Route: 041
     Dates: start: 20110727, end: 20110728

REACTIONS (2)
  - SEPSIS [None]
  - ADULT T-CELL LYMPHOMA/LEUKAEMIA [None]
